FAERS Safety Report 5018992-9 (Version None)
Quarter: 2006Q2

REPORT INFORMATION
  Report Type: 
  Country: None (occurrence: None)
  Receive Date: 20060606
  Receipt Date: 20060530
  Transmission Date: 20061013
  Serious: Yes (Hospitalization, Other)
  Sender: FDA-Public Use
  Company Number: 2005A2000152

PATIENT
  Age: 2 Week
  Sex: Male

DRUGS (5)
  1. ZIDOVUDINE [Suspect]
     Dosage: 12MG TWICE PER DAY
     Route: 048
     Dates: start: 20051019, end: 20051101
  2. ZIDOVUDINE [Concomitant]
     Route: 048
     Dates: start: 20051019, end: 20051019
  3. NYSTATIN [Concomitant]
     Dates: start: 20051025
  4. ASPIRIN [Concomitant]
     Dates: start: 20051029, end: 20051029
  5. ACETAMINOPHEN [Concomitant]
     Dates: start: 20051031, end: 20051031

REACTIONS (6)
  - ABDOMINAL DISTENSION [None]
  - PYREXIA [None]
  - RESPIRATORY DISTRESS [None]
  - SEPSIS [None]
  - THROMBOCYTOPENIA [None]
  - URINARY TRACT INFECTION [None]
